FAERS Safety Report 11344822 (Version 1)
Quarter: 2015Q3

REPORT INFORMATION
  Report Type: Spontaneous
  Country: US (occurrence: US)
  Receive Date: 20150806
  Receipt Date: 20150806
  Transmission Date: 20151125
  Serious: Yes (Other)
  Sender: FDA-Public Use
  Company Number: US-BAYER-2015-390650

PATIENT
  Age: 45 Year
  Sex: Female

DRUGS (1)
  1. MIRENA [Suspect]
     Active Substance: LEVONORGESTREL
     Indication: MENORRHAGIA
     Dosage: 20 MCG/24HR, CONT
     Route: 015
     Dates: start: 2009

REACTIONS (15)
  - Thyroid neoplasm [None]
  - Activities of daily living impaired [None]
  - Blood pressure fluctuation [None]
  - Adrenal disorder [Not Recovered/Not Resolved]
  - Vaginismus [Not Recovered/Not Resolved]
  - Renal mass [None]
  - Feeling abnormal [None]
  - Autoimmune thyroiditis [None]
  - Alopecia [Not Recovered/Not Resolved]
  - Headache [Not Recovered/Not Resolved]
  - Product use issue [None]
  - Blood cholesterol abnormal [None]
  - Visual impairment [Not Recovered/Not Resolved]
  - Bladder spasm [Not Recovered/Not Resolved]
  - Thyroid disorder [None]

NARRATIVE: CASE EVENT DATE: 2012
